FAERS Safety Report 13490140 (Version 1)
Quarter: 2017Q2

REPORT INFORMATION
  Report Type: Spontaneous
  Country: US (occurrence: US)
  Receive Date: 20170427
  Receipt Date: 20170427
  Transmission Date: 20170830
  Serious: No
  Sender: FDA-Public Use
  Company Number: US-MYLANLABS-2016M1039552

PATIENT
  Sex: Male

DRUGS (3)
  1. TRAZODONE [Concomitant]
     Active Substance: TRAZODONE HYDROCHLORIDE
     Dosage: UNK
  2. LORAZEPAM TABLETS, USP [Suspect]
     Active Substance: LORAZEPAM
     Indication: INSOMNIA
     Dosage: 3 MG, HS
     Route: 048
  3. LEVOTHYROXINE SODIUM TABLETS, USP [Suspect]
     Active Substance: LEVOTHYROXINE SODIUM
     Indication: HYPOTHYROIDISM
     Dosage: 125 ?G, QAM
     Route: 048

REACTIONS (4)
  - Constipation [Not Recovered/Not Resolved]
  - Lip dry [Not Recovered/Not Resolved]
  - Arthralgia [Not Recovered/Not Resolved]
  - Dehydration [Not Recovered/Not Resolved]

NARRATIVE: CASE EVENT DATE: 2016
